FAERS Safety Report 21012570 (Version 6)
Quarter: 2023Q2

REPORT INFORMATION
  Report Type: Report from Study
  Country: CA (occurrence: CA)
  Receive Date: 20220627
  Receipt Date: 20230517
  Transmission Date: 20230722
  Serious: Yes (Death, Hospitalization, Other)
  Sender: FDA-Public Use
  Company Number: CA-VER-202200339

PATIENT
  Age: 83 Year
  Sex: Male

DRUGS (3)
  1. TRIPTORELIN PAMOATE [Suspect]
     Active Substance: TRIPTORELIN PAMOATE
     Indication: Prostate cancer
     Dosage: MARCH/APRIL 2020, INSIDE OF DOSE WITH FREQUENCY ?ONCE EVERY 3 MONTHS.
     Route: 030
  2. TRIPTORELIN PAMOATE [Suspect]
     Active Substance: TRIPTORELIN PAMOATE
     Indication: Prostate cancer
     Route: 030
     Dates: end: 2020
  3. TRIPTORELIN PAMOATE [Suspect]
     Active Substance: TRIPTORELIN PAMOATE
     Indication: Prostate cancer
     Route: 030
     Dates: start: 20220803, end: 20220803

REACTIONS (7)
  - Penile haemorrhage [Not Recovered/Not Resolved]
  - Blood urine present [Unknown]
  - Gait disturbance [Unknown]
  - Confusional state [Unknown]
  - Pain in extremity [Unknown]
  - Death [Fatal]
  - Urinary tract infection [Not Recovered/Not Resolved]
